FAERS Safety Report 4312794-4 (Version None)
Quarter: 2004Q1

REPORT INFORMATION
  Report Type: 
  Country: None (occurrence: None)
  Receive Date: 20040304
  Receipt Date: 20040220
  Transmission Date: 20041129
  Serious: Yes (Hospitalization)
  Sender: FDA-Public Use
  Company Number: 2004198216JP

PATIENT
  Age: 28 Year
  Sex: Female
  Weight: 53 kg

DRUGS (11)
  1. SOLU-CORTEF [Suspect]
     Indication: DERMATITIS ALLERGIC
     Dosage: 100 MG, SINGLE, IV
     Route: 042
     Dates: start: 20040204, end: 20040204
  2. MINOMYCIN [Concomitant]
  3. QUISNON (SWORD TABLET) [Concomitant]
  4. MUCODYNE [Concomitant]
  5. HUSTAZOL (CLOPERASTINE HYDROCHLORIDE) [Concomitant]
  6. SHO-SAIKO-TO (CHINESE HERB MEDICINE) [Concomitant]
  7. MAKYO-KANSEKI-TO (CHINESE HERB MEDICINE) [Concomitant]
  8. KIKYO-TO (CHINESE HERB MEDICINE) [Concomitant]
  9. CEFCAPENE PIVOXIL HYDROCHLORIDE (CEFCAPENE PIVOXIL HYDROCHLORIDE) [Concomitant]
  10. SHO-SAIKO-TO-KA-KIKY-YO-SEKKO (CHINESE HERB MEDICINE) [Concomitant]
  11. KAKKON-TO (CHINESE HERB MEDICINE) [Concomitant]

REACTIONS (7)
  - ASTHENIA [None]
  - DEPRESSED LEVEL OF CONSCIOUSNESS [None]
  - FALL [None]
  - FEELING ABNORMAL [None]
  - HYPOAESTHESIA [None]
  - MUSCLE TWITCHING [None]
  - SHOCK [None]
